FAERS Safety Report 9213875 (Version 2)
Quarter: 2014Q2

REPORT INFORMATION
  Report Type: Spontaneous
  Country: FR (occurrence: FR)
  Receive Date: 20130405
  Receipt Date: 20140515
  Transmission Date: 20141212
  Serious: Yes (Hospitalization, Other)
  Sender: FDA-Public Use
  Company Number: FR-BRISTOL-MYERS SQUIBB COMPANY-18718106

PATIENT
  Age: 11 Year
  Sex: Male
  Weight: 40 kg

DRUGS (1)
  1. ETOPOPHOS [Suspect]
     Indication: TRANSPLANT
     Dosage: DOSE VALUE:2400 MG,PLANNED INITIALLY  FOR  26-MAR-13?STR: 100MG
     Route: 051
     Dates: start: 20130323

REACTIONS (2)
  - Renal failure acute [Recovered/Resolved]
  - Off label use [Unknown]
